FAERS Safety Report 7238842-X (Version None)
Quarter: 2011Q1

REPORT INFORMATION
  Report Type: 
  Country: None (occurrence: None)
  Receive Date: 20110121
  Receipt Date: 20110112
  Transmission Date: 20110831
  Serious: Yes (Other)
  Sender: FDA-Public Use
  Company Number: PHHY2011CA02820

PATIENT
  Sex: Male

DRUGS (1)
  1. SANDOSTATIN LAR [Suspect]
     Indication: NEUROENDOCRINE TUMOUR
     Dosage: 30 MG EVERY 04 WEEKS
     Route: 030
     Dates: start: 20100922

REACTIONS (3)
  - BRONCHITIS [None]
  - HEART RATE DECREASED [None]
  - BLOOD PRESSURE DECREASED [None]
